FAERS Safety Report 12864975 (Version 2)
Quarter: 2016Q4

REPORT INFORMATION
  Report Type: Spontaneous
  Country: US (occurrence: US)
  Receive Date: 20161020
  Receipt Date: 20161219
  Transmission Date: 20170207
  Serious: Yes (Other)
  Sender: FDA-Public Use
  Company Number: PHEH2016US026644

PATIENT
  Sex: Female
  Weight: 92 kg

DRUGS (1)
  1. ENTRESTO [Suspect]
     Active Substance: SACUBITRIL\VALSARTAN
     Indication: CARDIOMYOPATHY
     Dosage: 50 MG, BID
     Route: 048
     Dates: start: 20160202, end: 20160801

REACTIONS (2)
  - Acute kidney injury [Recovered/Resolved]
  - Product use issue [Unknown]
